FAERS Safety Report 5804111-5 (Version None)
Quarter: 2008Q3

REPORT INFORMATION
  Report Type: 
  Country: None (occurrence: None)
  Receive Date: 20080707
  Receipt Date: 20080707
  Transmission Date: 20090109
  Serious: Yes (Other)
  Sender: FDA-Public Use
  Company Number: None

PATIENT
  Age: 65 Year
  Sex: Male
  Weight: 84.8226 kg

DRUGS (3)
  1. WARFARIN SODIUM [Suspect]
     Indication: THROMBOSIS PROPHYLAXIS
     Dosage: VARYING DOSE B/W 5-10 YRS QHS PO
     Route: 048
     Dates: start: 20080225, end: 20080616
  2. WARFARIN SODIUM [Suspect]
     Indication: VENTRICULAR ASSIST DEVICE INSERTION
     Dosage: VARYING DOSE B/W 5-10 YRS QHS PO
     Route: 048
     Dates: start: 20080225, end: 20080616
  3. COUMADIN [Concomitant]

REACTIONS (2)
  - INTERNATIONAL NORMALISED RATIO DECREASED [None]
  - THERAPEUTIC RESPONSE UNEXPECTED WITH DRUG SUBSTITUTION [None]
